FAERS Safety Report 7243617-1 (Version None)
Quarter: 2011Q1

REPORT INFORMATION
  Report Type: 
  Country: None (occurrence: None)
  Receive Date: 20110125
  Receipt Date: 20110114
  Transmission Date: 20110831
  Serious: Yes (Hospitalization)
  Sender: FDA-Public Use
  Company Number: PHHO2010JP11409

PATIENT
  Sex: Male
  Weight: 49 kg

DRUGS (16)
  1. WARFARIN POTASSIUM [Concomitant]
     Dosage: UNK
     Dates: start: 19991117
  2. ACYCLOVIR [Concomitant]
  3. SENNOSIDE [Concomitant]
  4. FUROSEMIDE [Concomitant]
     Dosage: UNK
     Dates: start: 20090709
  5. ENALAPRIL MALEATE [Suspect]
     Indication: CARDIAC FAILURE
     Dosage: CODE NOT BROKEN
     Route: 048
     Dates: start: 20100309, end: 20101229
  6. CARVEDILOL [Concomitant]
     Dosage: UNK
     Dates: start: 20090323
  7. COMPARATOR ENALAPRIL [Suspect]
     Dosage: 20MG DAILY
     Route: 048
     Dates: start: 20100119
  8. FELBINAC [Concomitant]
  9. ARASENA A [Concomitant]
     Dosage: UNK
  10. ALISKIREN [Suspect]
     Indication: CARDIAC FAILURE
     Dosage: 150 MG DAILY
     Route: 048
     Dates: start: 20100216
  11. SPIRONOLACTONE [Concomitant]
     Dosage: UNK
     Dates: start: 20091106
  12. BLINDED ALISKIREN [Suspect]
     Indication: CARDIAC FAILURE
     Dosage: CODE NOT BROKEN
     Route: 048
     Dates: start: 20100309, end: 20101229
  13. BLINDED NO TREATMENT RECEIVED [Suspect]
     Indication: CARDIAC FAILURE
     Dosage: CODE NOT BROKEN
     Route: 048
     Dates: start: 20100309, end: 20101229
  14. NICORANDIL [Concomitant]
     Dosage: UNK
     Dates: start: 20060420
  15. SIGMART [Concomitant]
  16. COMPARATOR ENALAPRIL [Suspect]
     Indication: CARDIAC FAILURE
     Dosage: 10MG DAILY
     Route: 048
     Dates: start: 20091223

REACTIONS (28)
  - PANCYTOPENIA [None]
  - CONSTIPATION [None]
  - CHOLELITHIASIS [None]
  - SWELLING [None]
  - BONE ATROPHY [None]
  - ADENOCARCINOMA [None]
  - DEHYDRATION [None]
  - OCULAR ICTERUS [None]
  - FALL [None]
  - METASTASIS [None]
  - MALAISE [None]
  - HYPOTENSION [None]
  - ABDOMINAL DISCOMFORT [None]
  - PALLOR [None]
  - BURNING SENSATION [None]
  - ROTATOR CUFF SYNDROME [None]
  - JOINT SWELLING [None]
  - HYPOPHAGIA [None]
  - FAECES DISCOLOURED [None]
  - ANAEMIA [None]
  - EYELID OEDEMA [None]
  - MUSCULOSKELETAL PAIN [None]
  - FACE OEDEMA [None]
  - ABDOMINAL DISTENSION [None]
  - RENAL IMPAIRMENT [None]
  - DECREASED APPETITE [None]
  - OEDEMA PERIPHERAL [None]
  - ANKLE FRACTURE [None]
